FAERS Safety Report 25192252 (Version 1)
Quarter: 2025Q2

REPORT INFORMATION
  Report Type: Spontaneous
  Country: US (occurrence: None)
  Receive Date: 20250414
  Receipt Date: 20250414
  Transmission Date: 20250716
  Serious: No
  Sender: FDA-CTU
  Company Number: None

PATIENT
  Age: 43 Year
  Sex: Female
  Weight: 66.6 kg

DRUGS (2)
  1. BETADINE SURGICAL SCRUB [Suspect]
     Active Substance: POVIDONE-IODINE
     Indication: Surgery
     Route: 061
     Dates: start: 20240918, end: 20240918
  2. UNSPECIFIED INGREDIENT [Suspect]
     Active Substance: UNSPECIFIED INGREDIENT

REACTIONS (1)
  - Hypersensitivity [None]

NARRATIVE: CASE EVENT DATE: 20240918
